FAERS Safety Report 18730577 (Version 1)
Quarter: 2021Q1

REPORT INFORMATION
  Report Type: Spontaneous
  Country: US (occurrence: US)
  Receive Date: 20210112
  Receipt Date: 20210112
  Transmission Date: 20210419
  Serious: Yes (Other)
  Sender: FDA-Public Use
  Company Number: None

PATIENT
  Sex: Female

DRUGS (15)
  1. GLEEVEC [Suspect]
     Active Substance: IMATINIB MESYLATE
     Indication: EOSINOPHILIA
     Route: 048
     Dates: start: 20191227
  2. GLEEVEC [Concomitant]
     Active Substance: IMATINIB MESYLATE
  3. LANTUS [Concomitant]
     Active Substance: INSULIN GLARGINE
  4. METOPROLOL. [Concomitant]
     Active Substance: METOPROLOL
  5. TYLENOL [Concomitant]
     Active Substance: ACETAMINOPHEN
  6. AMLODIPINE [Concomitant]
     Active Substance: AMLODIPINE BESYLATE
  7. CHLORTHALID [Concomitant]
     Active Substance: CHLORTHALIDONE
  8. SPIRONOLACT [Concomitant]
     Active Substance: SPIRONOLACTONE
  9. EZETIMIBE. [Concomitant]
     Active Substance: EZETIMIBE
  10. HUMALOG [Concomitant]
     Active Substance: INSULIN LISPRO
  11. LOSARTAN. [Concomitant]
     Active Substance: LOSARTAN
  12. METFORMIN [Concomitant]
     Active Substance: METFORMIN HYDROCHLORIDE
  13. HYDRALAZINE [Concomitant]
     Active Substance: HYDRALAZINE HYDROCHLORIDE
  14. OMEPRAZOLE. [Concomitant]
     Active Substance: OMEPRAZOLE
  15. ROSUVATATIN [Concomitant]

REACTIONS (1)
  - Arterial therapeutic procedure [None]
